FAERS Safety Report 5102383-6 (Version None)
Quarter: 2006Q3

REPORT INFORMATION
  Report Type: 
  Country: None (occurrence: None)
  Receive Date: 20060912
  Receipt Date: 20060828
  Transmission Date: 20061208
  Serious: No
  Sender: FDA-Public Use
  Company Number: US-GLAXOSMITHKLINE-A0618240A

PATIENT
  Age: 73 Year
  Sex: Female

DRUGS (6)
  1. FLOVENT [Suspect]
     Indication: MULTIPLE ALLERGIES
     Dosage: 2PUFF FOUR TIMES PER DAY
     Route: 055
  2. ALBUTEROL [Concomitant]
  3. ATROVENT [Concomitant]
  4. ZOLOFT [Concomitant]
  5. VITAMINS [Concomitant]
  6. OXYGEN [Concomitant]

REACTIONS (3)
  - APHONIA [None]
  - PHARMACEUTICAL PRODUCT COMPLAINT [None]
  - SLEEP DISORDER [None]
